FAERS Safety Report 16485565 (Version 1)
Quarter: 2019Q2

REPORT INFORMATION
  Report Type: Spontaneous
  Country: US (occurrence: US)
  Receive Date: 20190627
  Receipt Date: 20190627
  Transmission Date: 20190711
  Serious: Yes (Hospitalization)
  Sender: FDA-Public Use
  Company Number: US-ASTRAZENECA-2019SE90567

PATIENT
  Age: 75 Year
  Sex: Female
  Weight: 58.1 kg

DRUGS (1)
  1. FASENRA [Suspect]
     Active Substance: BENRALIZUMAB
     Indication: ASTHMA
     Dosage: ONCE EVERY 4 WEEKS FOR THE FIRST 3 DOSES AND THEN ONCE EVERY 8 WEEKS THEREAFTER
     Route: 058
     Dates: start: 201810

REACTIONS (5)
  - Lymphadenopathy [Recovered/Resolved]
  - Oropharyngeal pain [Recovered/Resolved]
  - Anaphylactic reaction [Recovered/Resolved]
  - Dry skin [Recovered/Resolved]
  - Skin exfoliation [Recovered/Resolved]

NARRATIVE: CASE EVENT DATE: 2019
